FAERS Safety Report 6539762-6 (Version None)
Quarter: 2010Q1

REPORT INFORMATION
  Report Type: 
  Country: None (occurrence: None)
  Receive Date: 20100115
  Receipt Date: 20100107
  Transmission Date: 20100710
  Serious: Yes (Hospitalization, Other)
  Sender: FDA-Public Use
  Company Number: US-SANOFI-AVENTIS-2010SA001207

PATIENT
  Age: 59 Year
  Sex: Male
  Weight: 94.8 kg

DRUGS (5)
  1. DOCETAXEL [Suspect]
     Indication: PROSTATE CANCER
     Route: 042
     Dates: start: 20091209, end: 20091209
  2. DOCETAXEL [Suspect]
     Route: 042
     Dates: start: 20090819, end: 20090819
  3. BLINDED THERAPY [Suspect]
     Indication: PROSTATE CANCER
     Route: 048
     Dates: start: 20090819, end: 20091230
  4. PREDNISONE [Suspect]
     Indication: PROSTATE CANCER
     Route: 048
     Dates: start: 20090819, end: 20091230
  5. DEXAMETHASONE [Suspect]
     Indication: PREMEDICATION
     Route: 042
     Dates: start: 20090819, end: 20091209

REACTIONS (4)
  - BLOOD CREATININE [None]
  - HYPONATRAEMIA [None]
  - HYPOTENSION [None]
  - TUMOUR PAIN [None]
